FAERS Safety Report 23094977 (Version 1)
Quarter: 2023Q4

REPORT INFORMATION
  Report Type: Spontaneous
  Country: US (occurrence: US)
  Receive Date: 20231023
  Receipt Date: 20231023
  Transmission Date: 20240109
  Serious: Yes (Life-Threatening, Hospitalization, Other)
  Sender: FDA-Public Use
  Company Number: US-drreddys-SPO/USA/23/0180246

PATIENT
  Age: 81 Year
  Sex: Female

DRUGS (1)
  1. AMIODARONE HYDROCHLORIDE [Suspect]
     Active Substance: AMIODARONE HYDROCHLORIDE
     Indication: Product used for unknown indication
     Dosage: FOR 1 YEAR

REACTIONS (3)
  - Lung opacity [Recovering/Resolving]
  - Hypoxia [Recovering/Resolving]
  - Pulmonary toxicity [Recovering/Resolving]
